FAERS Safety Report 12132637 (Version 9)
Quarter: 2017Q1

REPORT INFORMATION
  Report Type: Spontaneous
  Country: US (occurrence: US)
  Receive Date: 20160301
  Receipt Date: 20170116
  Transmission Date: 20170428
  Serious: Yes (Other)
  Sender: FDA-Public Use
  Company Number: PHEH2016US004915

PATIENT
  Sex: Female

DRUGS (2)
  1. ZOFRAN ODT [Suspect]
     Active Substance: ONDANSETRON HYDROCHLORIDE
     Indication: VOMITING IN PREGNANCY
     Dosage: 8 MG, Q8H
     Route: 048
     Dates: start: 20041130
  2. ZOFRAN [Suspect]
     Active Substance: ONDANSETRON HYDROCHLORIDE
     Indication: VOMITING IN PREGNANCY
     Dosage: 8 MG, QD
     Route: 048
     Dates: start: 200412, end: 200507

REACTIONS (13)
  - Dyspnoea [Unknown]
  - Product use issue [Unknown]
  - Emotional distress [Unknown]
  - Bronchitis [Unknown]
  - Cough [Unknown]
  - Injury [Unknown]
  - Pain [Unknown]
  - Anxiety [Unknown]
  - Candida infection [Unknown]
  - Maternal exposure during pregnancy [Unknown]
  - Incision site dermatitis [Unknown]
  - Oropharyngeal pain [Unknown]
  - Paraesthesia [Unknown]
